FAERS Safety Report 23815477 (Version 1)
Quarter: 2024Q2

REPORT INFORMATION
  Report Type: Spontaneous
  Country: US (occurrence: US)
  Receive Date: 20240503
  Receipt Date: 20240503
  Transmission Date: 20240716
  Serious: No
  Sender: FDA-Public Use
  Company Number: US-INCYTE CORPORATION-2024IN004692

PATIENT

DRUGS (1)
  1. JAKAFI [Suspect]
     Active Substance: RUXOLITINIB
     Dosage: 20MG THREE TIMES A WEEK, 10MG ALL OTHER DAYS
     Route: 048

REACTIONS (2)
  - Thrombocytosis [Unknown]
  - Intentional product use issue [Unknown]
